FAERS Safety Report 5993541-7 (Version None)
Quarter: 2008Q4

REPORT INFORMATION
  Report Type: 
  Country: None (occurrence: None)
  Receive Date: 20081212
  Receipt Date: 20081203
  Transmission Date: 20090506
  Serious: Yes (Other)
  Sender: FDA-Public Use
  Company Number: PHHY2008TR19846

PATIENT
  Sex: Male

DRUGS (1)
  1. EXFORGE [Suspect]
     Indication: HYPERTENSION
     Dosage: 5/160 MG ONCE DAILY

REACTIONS (4)
  - ARRHYTHMIA [None]
  - ATRIOVENTRICULAR BLOCK [None]
  - FATIGUE [None]
  - HYPOTENSION [None]
